FAERS Safety Report 8958447 (Version 1)
Quarter: 2012Q4

REPORT INFORMATION
  Report Type: Spontaneous
  Country: US (occurrence: None)
  Receive Date: 20121205
  Receipt Date: 20121205
  Transmission Date: 20130627
  Serious: No
  Sender: FDA-Public Use
  Company Number: None

PATIENT
  Age: 57 Year
  Sex: Male
  Weight: 122.1 kg

DRUGS (1)
  1. LATANOPROST [Suspect]
     Dosage: 1 DROPS AT BEDTIME EYE
     Dates: start: 20120726, end: 20121120

REACTIONS (2)
  - Intraocular pressure increased [None]
  - Therapeutic response decreased [None]
